FAERS Safety Report 7351113-6 (Version None)
Quarter: 2011Q1

REPORT INFORMATION
  Report Type: 
  Country: None (occurrence: None)
  Receive Date: 20110314
  Receipt Date: 20110307
  Transmission Date: 20110831
  Serious: Yes (Hospitalization)
  Sender: FDA-Public Use
  Company Number: US-US-EMD SERONO, INC.-231111J08USA

PATIENT
  Sex: Female
  Weight: 154 kg

DRUGS (6)
  1. LIPITOR [Concomitant]
     Indication: BLOOD CHOLESTEROL INCREASED
  2. REBIF [Suspect]
     Indication: MULTIPLE SCLEROSIS
     Route: 058
     Dates: start: 20050427, end: 20110101
  3. NEXIUM [Concomitant]
     Indication: GASTRIC DISORDER
  4. SINGULAIR [Concomitant]
     Indication: ASTHMA
  5. CELEBREX [Concomitant]
     Indication: MULTIPLE SCLEROSIS
  6. ALBUTEROL [Concomitant]
     Indication: ASTHMA
     Route: 055

REACTIONS (3)
  - PNEUMONIA [None]
  - CHOLELITHIASIS [None]
  - CHOLECYSTITIS INFECTIVE [None]
